FAERS Safety Report 7636397-9 (Version None)
Quarter: 2011Q3

REPORT INFORMATION
  Report Type: 
  Country: None (occurrence: None)
  Receive Date: 20110719
  Receipt Date: 20110707
  Transmission Date: 20111222
  Serious: Yes (Hospitalization)
  Sender: FDA-Public Use
  Company Number: 2011SP032468

PATIENT
  Age: 19 Year
  Sex: Male

DRUGS (6)
  1. LORAZEPAM [Concomitant]
  2. MIRTAZAPINE [Suspect]
     Dosage: 7.5 MG, QD; 15 MG, QD; 22.5 MG, QD; 30 MG, QD;
  3. MIRTAZAPINE [Suspect]
     Dosage: 7.5 MG, QD; 15 MG, QD; 22.5 MG, QD; 30 MG, QD;
  4. MIRTAZAPINE [Suspect]
     Dosage: 7.5 MG, QD; 15 MG, QD; 22.5 MG, QD; 30 MG, QD;
  5. MIRTAZAPINE [Suspect]
     Dosage: 7.5 MG, QD; 15 MG, QD; 22.5 MG, QD; 30 MG, QD;
  6. ALPRAZOLAM [Concomitant]

REACTIONS (5)
  - NAUSEA [None]
  - ABDOMINAL DISCOMFORT [None]
  - VOMITING [None]
  - HEPATOCELLULAR INJURY [None]
  - ALANINE AMINOTRANSFERASE INCREASED [None]
